FAERS Safety Report 4552701-2 (Version None)
Quarter: 2005Q1

REPORT INFORMATION
  Report Type: 
  Country: None (occurrence: None)
  Receive Date: 20050114
  Receipt Date: 20041222
  Transmission Date: 20050727
  Serious: Yes (Death, Hospitalization)
  Sender: FDA-Public Use
  Company Number: JP-BRISTOL-MYERS SQUIBB COMPANY-12805719

PATIENT
  Age: 58 Year
  Sex: Male

DRUGS (7)
  1. MITOMYCIN [Suspect]
     Indication: LUNG SQUAMOUS CELL CARCINOMA STAGE UNSPECIFIED
     Route: 042
  2. CISPLATIN [Suspect]
     Indication: LUNG SQUAMOUS CELL CARCINOMA STAGE UNSPECIFIED
  3. ETOPOSIDE [Suspect]
     Indication: BRAIN NEOPLASM
  4. CARBOPLATIN [Suspect]
     Indication: BRAIN NEOPLASM
  5. VINDESINE SULFATE [Suspect]
     Indication: LUNG SQUAMOUS CELL CARCINOMA STAGE UNSPECIFIED
  6. RADIATION THERAPY [Suspect]
     Indication: LUNG SQUAMOUS CELL CARCINOMA STAGE UNSPECIFIED
  7. RADIATION THERAPY [Suspect]
     Indication: BRAIN NEOPLASM

REACTIONS (2)
  - ACUTE MYELOID LEUKAEMIA [None]
  - TREATMENT RELATED SECONDARY MALIGNANCY [None]
